FAERS Safety Report 13017044 (Version 1)
Quarter: 2016Q4

REPORT INFORMATION
  Report Type: Spontaneous
  Country: JP (occurrence: JP)
  Receive Date: 20161212
  Receipt Date: 20161212
  Transmission Date: 20170207
  Serious: Yes (Life-Threatening, Hospitalization)
  Sender: FDA-Public Use
  Company Number: JP-BAYER-2016-227937

PATIENT
  Age: 81 Year
  Sex: Female

DRUGS (1)
  1. BAYASPIRIN 100 MG [Suspect]
     Active Substance: ASPIRIN
     Indication: CORONARY ARTERY STENOSIS
     Dosage: UNK
     Route: 048

REACTIONS (4)
  - Shock haemorrhagic [None]
  - Cardiac failure congestive [None]
  - Disseminated intravascular coagulation [None]
  - Diverticulum intestinal haemorrhagic [Recovered/Resolved]
